FAERS Safety Report 14556343 (Version 8)
Quarter: 2021Q1

REPORT INFORMATION
  Report Type: Report from Study
  Country: JP (occurrence: JP)
  Receive Date: 20180221
  Receipt Date: 20210201
  Transmission Date: 20210419
  Serious: Yes (Hospitalization, Other)
  Sender: FDA-Public Use
  Company Number: JP-BRISTOL-MYERS SQUIBB COMPANY-BMS-2016-012878

PATIENT
  Age: 45 Year
  Sex: Male
  Weight: 79 kg

DRUGS (7)
  1. NIVOLUMAB [Suspect]
     Active Substance: NIVOLUMAB
     Indication: MALIGNANT MELANOMA STAGE IV
     Dosage: 2 MILLIGRAM/KILOGRAM
     Route: 065
     Dates: start: 20151110, end: 20151110
  2. NIVOLUMAB [Suspect]
     Active Substance: NIVOLUMAB
     Dosage: 2 MILLIGRAM/KILOGRAM
     Route: 065
     Dates: start: 20151203, end: 20151203
  3. NIVOLUMAB [Suspect]
     Active Substance: NIVOLUMAB
     Dosage: 2 MILLIGRAM/KILOGRAM
     Route: 065
     Dates: start: 20160114, end: 20160114
  4. NIVOLUMAB [Suspect]
     Active Substance: NIVOLUMAB
     Dosage: 2 MILLIGRAM/KILOGRAM
     Route: 065
     Dates: start: 20160204, end: 20160204
  5. NIVOLUMAB [Suspect]
     Active Substance: NIVOLUMAB
     Dosage: 2 MILLIGRAM/KILOGRAM
     Route: 065
     Dates: start: 20151224, end: 20151224
  6. YERVOY [Suspect]
     Active Substance: IPILIMUMAB
     Indication: MALIGNANT MELANOMA STAGE IV
     Dosage: 3 MG/KG, Q3WK
     Route: 041
     Dates: start: 20160408, end: 20160524
  7. YERVOY [Suspect]
     Active Substance: IPILIMUMAB
     Dosage: UNK
     Route: 065
     Dates: start: 201606

REACTIONS (14)
  - Facial paralysis [Recovered/Resolved]
  - Pyrexia [Recovered/Resolved]
  - Vitiligo [Not Recovered/Not Resolved]
  - Achromotrichia acquired [Not Recovered/Not Resolved]
  - Urticaria [Recovered/Resolved]
  - Tinnitus [Recovered/Resolved]
  - Hyperthyroidism [Recovered/Resolved]
  - Monocytosis [Unknown]
  - Off label use [Unknown]
  - Iridocyclitis [Recovered/Resolved]
  - Skin depigmentation [Unknown]
  - Otitis media [Recovered/Resolved]
  - Liver disorder [Not Recovered/Not Resolved]
  - Headache [Recovered/Resolved]

NARRATIVE: CASE EVENT DATE: 201604
